FAERS Safety Report 6235112-3 (Version None)
Quarter: 2009Q2

REPORT INFORMATION
  Report Type: 
  Country: None (occurrence: None)
  Receive Date: 20090615
  Receipt Date: 20090605
  Transmission Date: 20091009
  Serious: Yes (Life-Threatening, Hospitalization, Disabling)
  Sender: FDA-Public Use
  Company Number: TPG2009A00487

PATIENT
  Age: 76 Year
  Sex: Female

DRUGS (4)
  1. ACTOS [Suspect]
     Indication: DIABETES MELLITUS
     Dosage: PER ORAL
     Route: 048
     Dates: start: 20060501, end: 20081201
  2. CONCOR PLUS (HYDROCHLOROTHIAZIDE, BISOPROLOL HEMIFUMARATE) [Concomitant]
  3. DIABETEX (METFORMIN HYDROCHLORIDE) [Concomitant]
  4. PRAVASTATIN SODIUM [Concomitant]

REACTIONS (1)
  - RECTOSIGMOID CANCER [None]
